APPROVED DRUG PRODUCT: RELAFEN
Active Ingredient: NABUMETONE
Strength: 750MG **Federal Register determination that product was not discontinued or withdrawn for safety or effectiveness reasons**
Dosage Form/Route: TABLET;ORAL
Application: N019583 | Product #002
Applicant: SMITHKLINE BEECHAM CORP DBA GLAXOSMITHKLINE
Approved: Dec 24, 1991 | RLD: Yes | RS: No | Type: DISCN